FAERS Safety Report 16838847 (Version 2)
Quarter: 2025Q3

REPORT INFORMATION
  Report Type: Spontaneous
  Country: EU (occurrence: EU)
  Receive Date: 20190923
  Receipt Date: 20250922
  Transmission Date: 20251021
  Serious: Yes (Disabling)
  Sender: MYLAN
  Company Number: EU-ACCORD-070947

PATIENT
  Age: 52 Year
  Sex: Male

DRUGS (14)
  1. ARIPIPRAZOLE [Suspect]
     Active Substance: ARIPIPRAZOLE
     Indication: Mania
  2. ARIPIPRAZOLE [Suspect]
     Active Substance: ARIPIPRAZOLE
     Route: 065
  3. ARIPIPRAZOLE [Suspect]
     Active Substance: ARIPIPRAZOLE
     Route: 065
  4. ARIPIPRAZOLE [Suspect]
     Active Substance: ARIPIPRAZOLE
  5. RISPERIDONE [Suspect]
     Active Substance: RISPERIDONE
     Indication: Mania
  6. RISPERIDONE [Suspect]
     Active Substance: RISPERIDONE
     Route: 065
  7. RISPERIDONE [Suspect]
     Active Substance: RISPERIDONE
     Route: 065
  8. RISPERIDONE [Suspect]
     Active Substance: RISPERIDONE
  9. QUETIAPINE [Suspect]
     Active Substance: QUETIAPINE
     Indication: Mania
  10. QUETIAPINE [Suspect]
     Active Substance: QUETIAPINE
     Route: 048
  11. QUETIAPINE [Suspect]
     Active Substance: QUETIAPINE
     Route: 048
  12. QUETIAPINE [Suspect]
     Active Substance: QUETIAPINE
  13. LITHIUM [Suspect]
     Active Substance: LITHIUM
     Indication: Mania
  14. LITHIUM [Suspect]
     Active Substance: LITHIUM

REACTIONS (5)
  - Condition aggravated [Unknown]
  - Cognitive disorder [Unknown]
  - Mania [Unknown]
  - Blunted affect [Unknown]
  - Parkinsonism [Unknown]
